FAERS Safety Report 9842607 (Version 1)
Quarter: 2014Q1

REPORT INFORMATION
  Report Type: Spontaneous
  Country: US (occurrence: US)
  Receive Date: 20140124
  Receipt Date: 20140124
  Transmission Date: 20141002
  Serious: Yes (Hospitalization)
  Sender: FDA-Public Use
  Company Number: US-CELGENEUS-163-20785-14012706

PATIENT
  Age: 82 Year
  Sex: Female

DRUGS (4)
  1. THALOMID [Suspect]
     Indication: PLASMA CELL MYELOMA
     Dosage: 100 MILLIGRAM
     Route: 048
     Dates: start: 201012
  2. THALOMID [Suspect]
     Dosage: 100 MILLIGRAM
     Route: 048
     Dates: start: 201203
  3. THALOMID [Suspect]
     Dosage: 50 MILLIGRAM
     Route: 048
  4. COUMADIN [Concomitant]
     Indication: PRODUCT USED FOR UNKNOWN INDICATION
     Route: 065

REACTIONS (4)
  - Anticoagulation drug level below therapeutic [Unknown]
  - Bronchitis [Unknown]
  - Somnolence [Unknown]
  - Drug dose omission [Unknown]
